FAERS Safety Report 15930526 (Version 12)
Quarter: 2019Q1

REPORT INFORMATION
  Report Type: Spontaneous
  Country: GB (occurrence: GB)
  Receive Date: 20190207
  Receipt Date: 20190318
  Transmission Date: 20190417
  Serious: Yes (Hospitalization, Other)
  Sender: FDA-Public Use
  Company Number: PHHY2019GB024008

PATIENT
  Age: 56 Year
  Sex: Female

DRUGS (22)
  1. RITUXIMAB. [Suspect]
     Active Substance: RITUXIMAB
     Indication: INTERSTITIAL LUNG DISEASE
  2. METHYLPREDNISOLONE. [Suspect]
     Active Substance: METHYLPREDNISOLONE
     Indication: ANTISYNTHETASE SYNDROME
     Dosage: UNK
     Route: 042
  3. METFORMIN [Concomitant]
     Active Substance: METFORMIN HYDROCHLORIDE
     Indication: TYPE 2 DIABETES MELLITUS
     Dosage: UNK
     Route: 065
  4. PREDNISOLONE. [Suspect]
     Active Substance: PREDNISOLONE
     Indication: INTERSTITIAL LUNG DISEASE
  5. IMMUNOGLOBULIN HUMAN NORMAL [Suspect]
     Active Substance: HUMAN IMMUNOGLOBULIN G
     Indication: INTERSTITIAL LUNG DISEASE
     Dosage: UNK MONTHLY
     Route: 042
  6. CLARITHROMYCIN. [Concomitant]
     Active Substance: CLARITHROMYCIN
     Indication: PNEUMONIA
     Dosage: UNK
     Route: 045
  7. PREDNISOLONE. [Suspect]
     Active Substance: PREDNISOLONE
     Indication: ANTISYNTHETASE SYNDROME
     Dosage: UNK
     Route: 048
  8. CYCLOPHOSPHAMIDE. [Suspect]
     Active Substance: CYCLOPHOSPHAMIDE
     Indication: ANTISYNTHETASE SYNDROME
     Dosage: UNK
     Route: 042
  9. FLUCONAZOLE. [Concomitant]
     Active Substance: FLUCONAZOLE
     Indication: ACUTE RESPIRATORY DISTRESS SYNDROME
     Route: 065
  10. METHYLPREDNISOLONE SODIUM SUCCINATE. [Suspect]
     Active Substance: METHYLPREDNISOLONE SODIUM SUCCINATE
     Indication: ANTISYNTHETASE SYNDROME
  11. ACYCLOVIR. [Concomitant]
     Active Substance: ACYCLOVIR
     Indication: PRODUCT USED FOR UNKNOWN INDICATION
     Dosage: UNK
     Route: 065
  12. MEROPENEM. [Concomitant]
     Active Substance: MEROPENEM
     Indication: ACUTE RESPIRATORY DISTRESS SYNDROME
     Route: 065
  13. COTRIMOXAZOLE [Concomitant]
     Active Substance: SULFAMETHOXAZOLE\TRIMETHOPRIM
     Indication: PRODUCT USED FOR UNKNOWN INDICATION
     Dosage: UNK
     Route: 065
  14. IMMUNOGLOBULIN HUMAN NORMAL [Suspect]
     Active Substance: HUMAN IMMUNOGLOBULIN G
     Indication: ANTISYNTHETASE SYNDROME
  15. PARACETAMOL [Concomitant]
     Active Substance: ACETAMINOPHEN
     Indication: PNEUMONIA
     Route: 065
  16. NOREPINEPHRINE. [Concomitant]
     Active Substance: NOREPINEPHRINE
     Indication: VASOPLEGIA SYNDROME
     Dosage: 0.7 UG/KG/MIN
     Route: 065
  17. ITRACONAZOLE. [Concomitant]
     Active Substance: ITRACONAZOLE
     Indication: PRODUCT USED FOR UNKNOWN INDICATION
     Dosage: UNK
     Route: 065
  18. PIPERACILLIN/TAZOBACTAM [Concomitant]
     Active Substance: PIPERACILLIN SODIUM\TAZOBACTAM SODIUM
     Indication: PNEUMONIA
     Route: 065
  19. RITUXIMAB. [Suspect]
     Active Substance: RITUXIMAB
     Indication: ANTISYNTHETASE SYNDROME
     Dosage: 2 G, 1  MONTHL
     Route: 065
  20. TACROLIMUS. [Suspect]
     Active Substance: TACROLIMUS
     Indication: INTERSTITIAL LUNG DISEASE
     Dosage: UNK
     Route: 065
  21. TACROLIMUS. [Suspect]
     Active Substance: TACROLIMUS
     Indication: ANTISYNTHETASE SYNDROME
  22. METHYLPREDNISOLONE SODIUM SUCCINATE. [Suspect]
     Active Substance: METHYLPREDNISOLONE SODIUM SUCCINATE
     Indication: INTERSTITIAL LUNG DISEASE
     Dosage: UNK
     Route: 042

REACTIONS (3)
  - Therapeutic response decreased [Unknown]
  - Sepsis [Unknown]
  - Skin reaction [Unknown]
